FAERS Safety Report 7335714-7 (Version None)
Quarter: 2011Q1

REPORT INFORMATION
  Report Type: 
  Country: None (occurrence: None)
  Receive Date: 20110301
  Receipt Date: 20110301
  Transmission Date: 20110831
  Serious: Yes (Hospitalization)
  Sender: FDA-Public Use
  Company Number: None

PATIENT
  Age: 17 Year
  Sex: Female
  Weight: 53.5244 kg

DRUGS (1)
  1. YAZ [Suspect]
     Indication: DYSMENORRHOEA
     Dosage: 1TABLET DAILY PO
     Route: 048
     Dates: start: 20100130, end: 20100530

REACTIONS (2)
  - PAIN [None]
  - CHOLECYSTECTOMY [None]
